FAERS Safety Report 9029654 (Version 4)
Quarter: 2013Q1

REPORT INFORMATION
  Report Type: Spontaneous
  Country: JP (occurrence: JP)
  Receive Date: 20130125
  Receipt Date: 20130322
  Transmission Date: 20140127
  Serious: Yes (Death, Life-Threatening, Hospitalization)
  Sender: FDA-Public Use
  Company Number: PHHY2013JP006293

PATIENT
  Age: 81 None
  Sex: Male
  Weight: 44 kg

DRUGS (1)
  1. GLIVEC [Suspect]
     Indication: GASTROINTESTINAL STROMAL TUMOUR
     Dosage: 200 MG, UNK
     Route: 048
     Dates: start: 20090119, end: 20090524

REACTIONS (14)
  - Pneumonia aspiration [Fatal]
  - Retroperitoneal fibrosis [Not Recovered/Not Resolved]
  - B-cell lymphoma [Not Recovered/Not Resolved]
  - Second primary malignancy [Unknown]
  - Interleukin-2 receptor increased [Unknown]
  - Night sweats [Unknown]
  - Malaise [Unknown]
  - Blood lactate dehydrogenase increased [Not Recovered/Not Resolved]
  - Hydronephrosis [Unknown]
  - Ureteric dilatation [Unknown]
  - Bladder hypertrophy [Unknown]
  - Anorectal disorder [Unknown]
  - Renal impairment [Recovered/Resolved]
  - Blood creatinine increased [Recovered/Resolved]
